FAERS Safety Report 22174076 (Version 7)
Quarter: 2024Q1

REPORT INFORMATION
  Report Type: Report from Study
  Country: US (occurrence: US)
  Receive Date: 20230405
  Receipt Date: 20240103
  Transmission Date: 20240409
  Serious: Yes (Other)
  Sender: FDA-Public Use
  Company Number: US-ABBVIE-4713898

PATIENT
  Age: 59 Year
  Sex: Female

DRUGS (5)
  1. HUMIRA [Suspect]
     Active Substance: ADALIMUMAB
     Indication: Psoriasis
     Dosage: CITRATE FREE?FORM STRENGTH: 40 MG
     Route: 058
     Dates: start: 20211124
  2. HUMIRA [Suspect]
     Active Substance: ADALIMUMAB
     Indication: Psoriatic arthropathy
     Dosage: CITRATE FREE?FORM STRENGTH: 40 MG
     Route: 058
  3. HUMIRA [Suspect]
     Active Substance: ADALIMUMAB
     Indication: Colitis ulcerative
  4. METHOTREXATE [Concomitant]
     Active Substance: METHOTREXATE
     Indication: Product used for unknown indication
  5. HYDROXYCHLOROQUINE [Concomitant]
     Active Substance: HYDROXYCHLOROQUINE
     Indication: Psoriatic arthropathy

REACTIONS (17)
  - Disability [Unknown]
  - Thrombosis [Unknown]
  - Psoriatic arthropathy [Not Recovered/Not Resolved]
  - Ankylosing spondylitis [Not Recovered/Not Resolved]
  - Hypoaesthesia [Unknown]
  - Ligament rupture [Not Recovered/Not Resolved]
  - Weight increased [Unknown]
  - Blood pressure abnormal [Unknown]
  - Nephrolithiasis [Unknown]
  - Neuropathy peripheral [Unknown]
  - Fibromyalgia [Unknown]
  - Pain [Recovered/Resolved]
  - Cholelithiasis [Not Recovered/Not Resolved]
  - Nephrolithiasis [Recovered/Resolved]
  - Stenosis [Unknown]
  - Gait disturbance [Unknown]
  - Dysstasia [Unknown]

NARRATIVE: CASE EVENT DATE: 20230101
